FAERS Safety Report 4313882-9 (Version None)
Quarter: 2004Q1

REPORT INFORMATION
  Report Type: 
  Country: None (occurrence: None)
  Receive Date: 20040302
  Receipt Date: 20031202
  Transmission Date: 20041129
  Serious: Yes (Hospitalization)
  Sender: FDA-Public Use
  Company Number: 002#1#2003-00557(0)

PATIENT
  Age: 70 Year
  Sex: Female

DRUGS (1)
  1. REGLAN [Suspect]
     Dosage: ORAL
     Route: 048

REACTIONS (1)
  - FATIGUE [None]
